FAERS Safety Report 6772557-7 (Version None)
Quarter: 2010Q2

REPORT INFORMATION
  Report Type: 
  Country: None (occurrence: None)
  Receive Date: 20100614
  Receipt Date: 20100527
  Transmission Date: 20101027
  Serious: Yes (Hospitalization, Other)
  Sender: FDA-Public Use
  Company Number: 1000013409

PATIENT
  Age: 49 Year
  Sex: Female

DRUGS (4)
  1. MILNACIPRAN (MILNACIPRAN HYDROCHLORIDE) (TABLETS) [Suspect]
     Indication: DEPRESSION
     Dosage: 50 MG (50 MG, 1 IN 1 D), ORAL, 30 MG (30 MG, 1 IN 1 D), ORAL
     Route: 048
     Dates: start: 20080920, end: 20100331
  2. MILNACIPRAN (MILNACIPRAN HYDROCHLORIDE) (TABLETS) [Suspect]
     Indication: DEPRESSION
     Dosage: 50 MG (50 MG, 1 IN 1 D), ORAL, 30 MG (30 MG, 1 IN 1 D), ORAL
     Route: 048
     Dates: start: 20100401
  3. L-CYSTEINE HCL 8.8% [Suspect]
     Indication: PRODUCTIVE COUGH
     Dosage: 200 MG (200 MG, 1 IN 1 D), ORAL
     Route: 048
     Dates: start: 20070920, end: 20100408
  4. ZOPICLONE [Suspect]
     Indication: INSOMNIA
     Dosage: 7.5 MG (7.5 1 IN 1 D) ORAL
     Dates: start: 20070920, end: 20100408

REACTIONS (3)
  - CONSTIPATION [None]
  - DISEASE RECURRENCE [None]
  - SHOCK [None]
